FAERS Safety Report 6825112-4 (Version None)
Quarter: 2010Q3

REPORT INFORMATION
  Report Type: 
  Country: None (occurrence: None)
  Receive Date: 20100708
  Receipt Date: 20070126
  Transmission Date: 20110219
  Serious: No
  Sender: FDA-Public Use
  Company Number: US-PFIZER INC-2007001149

PATIENT
  Age: 36 Year
  Sex: Female

DRUGS (8)
  1. CHANTIX [Suspect]
     Indication: SMOKING CESSATION THERAPY
     Dates: start: 20061122
  2. LITHIUM CARBONATE [Suspect]
     Dates: start: 20061207
  3. ABILIFY [Concomitant]
  4. CYMBALTA [Concomitant]
  5. TOPAMAX [Concomitant]
  6. PHENOBARBITAL [Concomitant]
  7. ZONEGRAN [Concomitant]
  8. TRANXENE [Concomitant]

REACTIONS (2)
  - DIZZINESS [None]
  - THERAPEUTIC RESPONSE DECREASED [None]
